FAERS Safety Report 6147596-X (Version None)
Quarter: 2009Q2

REPORT INFORMATION
  Report Type: 
  Country: None (occurrence: None)
  Receive Date: 20090408
  Receipt Date: 20090330
  Transmission Date: 20091009
  Serious: Yes (Hospitalization)
  Sender: FDA-Public Use
  Company Number: BR-BAYER-200914438LA

PATIENT
  Age: 73 Year
  Sex: Male
  Weight: 86 kg

DRUGS (6)
  1. AVALOX AG [Suspect]
     Indication: LUNG INFECTION
     Route: 048
     Dates: start: 20090319, end: 20090319
  2. BANIFIX [Concomitant]
     Indication: LUNG INFECTION
     Route: 048
  3. METICORTEN [Concomitant]
     Indication: ASTHMA
     Route: 048
  4. FORASET [Concomitant]
     Route: 048
  5. ATROVENT [Concomitant]
     Route: 045
  6. BEROTEC [Concomitant]
     Route: 045

REACTIONS (7)
  - APHASIA [None]
  - BLINDNESS [None]
  - FORMICATION [None]
  - PRURITUS [None]
  - RASH MACULAR [None]
  - SENSORY DISTURBANCE [None]
  - TONGUE DISCOLOURATION [None]
